FAERS Safety Report 4815938-0 (Version None)
Quarter: 2005Q4

REPORT INFORMATION
  Report Type: 
  Country: None (occurrence: None)
  Receive Date: 20051031
  Receipt Date: 20051021
  Transmission Date: 20060501
  Serious: Yes (Other)
  Sender: FDA-Public Use
  Company Number: US-KINGPHARMUSA00001-K200501399

PATIENT
  Age: 60 Year
  Sex: Female
  Weight: 121 kg

DRUGS (2)
  1. ALTACE [Suspect]
     Indication: ATRIOVENTRICULAR BLOCK
     Dosage: 10 MG, BID
     Route: 048
     Dates: start: 20050101
  2. PRILOSEC [Concomitant]
     Indication: GASTROOESOPHAGEAL REFLUX DISEASE
     Dosage: UNK, UNK
     Dates: start: 20020101

REACTIONS (4)
  - ABDOMINAL PAIN UPPER [None]
  - HEPATIC NEOPLASM [None]
  - HEPATIC NEOPLASM MALIGNANT [None]
  - NEOPLASM MALIGNANT [None]
